FAERS Safety Report 18125426 (Version 2)
Quarter: 2020Q3

REPORT INFORMATION
  Report Type: Spontaneous
  Country: US (occurrence: US)
  Receive Date: 20200807
  Receipt Date: 20200826
  Transmission Date: 20201103
  Serious: No
  Sender: FDA-Public Use
  Company Number: US-ALKERMES INC.-ALK-2020-003150

PATIENT
  Sex: Male

DRUGS (2)
  1. VIVITROL [Suspect]
     Active Substance: NALTREXONE
     Indication: DRUG DEPENDENCE
     Dosage: 380 MILLIGRAM, QMO
     Route: 030
     Dates: start: 20200726
  2. VIVITROL [Suspect]
     Active Substance: NALTREXONE
     Dosage: 380 MILLIGRAM, QMO
     Route: 030

REACTIONS (7)
  - Nausea [Recovered/Resolved]
  - Inappropriate schedule of product administration [Unknown]
  - Product dose omission issue [Recovered/Resolved]
  - Malaise [Recovered/Resolved]
  - Therapeutic product effect decreased [Not Recovered/Not Resolved]
  - Drug dependence [Not Recovered/Not Resolved]
  - Frustration tolerance decreased [Recovered/Resolved]
